FAERS Safety Report 5375577-2 (Version None)
Quarter: 2007Q2

REPORT INFORMATION
  Report Type: 
  Country: None (occurrence: None)
  Receive Date: 20070629
  Receipt Date: 20070621
  Transmission Date: 20071010
  Serious: Yes (Other)
  Sender: FDA-Public Use
  Company Number: SE-ALLERGAN-0706597US

PATIENT
  Sex: Female

DRUGS (2)
  1. BOTOX [Suspect]
     Indication: DRUG USE FOR UNKNOWN INDICATION
     Dosage: UNK, UNK
     Dates: start: 20070314, end: 20070314
  2. BOTOX [Suspect]
     Dates: start: 20070322, end: 20070322

REACTIONS (3)
  - DYSPNOEA [None]
  - LIP SWELLING [None]
  - OEDEMA MOUTH [None]
